FAERS Safety Report 22595458 (Version 1)
Quarter: 2023Q2

REPORT INFORMATION
  Report Type: Report from Study
  Country: US (occurrence: US)
  Receive Date: 20230613
  Receipt Date: 20230613
  Transmission Date: 20230722
  Serious: Yes (Other)
  Sender: FDA-Public Use
  Company Number: US-XERIS PHARMACEUTICALS-2023XER00081

PATIENT
  Sex: Male

DRUGS (3)
  1. RECORLEV [Suspect]
     Active Substance: LEVOKETOCONAZOLE
     Indication: Pituitary-dependent Cushing^s syndrome
     Dosage: 1 TABLET (150 MG), 2X/DAY
     Route: 048
     Dates: start: 20230317, end: 2023
  2. RECORLEV [Suspect]
     Active Substance: LEVOKETOCONAZOLE
     Dosage: 2 TABLETS (300 MG), 2X/DAY
     Route: 048
     Dates: start: 2023
  3. UNSPECIFIED INGREDIENT [Suspect]
     Active Substance: UNSPECIFIED INGREDIENT

REACTIONS (4)
  - Nausea [Unknown]
  - Dehydration [Not Recovered/Not Resolved]
  - Fluid retention [Unknown]
  - Peripheral swelling [Unknown]

NARRATIVE: CASE EVENT DATE: 20230101
